FAERS Safety Report 12484010 (Version 2)
Quarter: 2016Q3

REPORT INFORMATION
  Report Type: Other
  Country: RU (occurrence: RU)
  Receive Date: 20160621
  Receipt Date: 20160706
  Transmission Date: 20161109
  Serious: Yes (Hospitalization)
  Sender: FDA-Public Use
  Company Number: RU-LUPIN PHARMACEUTICALS INC.-2016-02646

PATIENT
  Age: 52 Year
  Sex: Female

DRUGS (1)
  1. AMLODIPINE [Suspect]
     Active Substance: AMLODIPINE BESYLATE
     Indication: PRODUCT USED FOR UNKNOWN INDICATION
     Route: 065

REACTIONS (6)
  - Overdose [Unknown]
  - Septic shock [Unknown]
  - Suicide attempt [Unknown]
  - Toxicity to various agents [Unknown]
  - Neuromyopathy [Unknown]
  - Multiple organ dysfunction syndrome [Unknown]
